FAERS Safety Report 8224585-2 (Version None)
Quarter: 2012Q1

REPORT INFORMATION
  Report Type: 
  Country: None (occurrence: None)
  Receive Date: 20120321
  Receipt Date: 20120309
  Transmission Date: 20120608
  Serious: Yes (Hospitalization)
  Sender: FDA-Public Use
  Company Number: FR-ELI_LILLY_AND_COMPANY-FR201109007033

PATIENT
  Sex: Female

DRUGS (8)
  1. AMOXICILLIN [Concomitant]
     Indication: TOOTH ABSCESS
     Dosage: UNK
     Route: 048
     Dates: start: 20110603, end: 20110614
  2. ART [Concomitant]
     Dosage: 50 MG, UNKNOWN
     Route: 065
     Dates: end: 20110616
  3. PROZAC [Suspect]
     Indication: DEPRESSION
     Dosage: UNK
     Route: 048
     Dates: start: 20110606, end: 20110614
  4. CLIMASTON [Concomitant]
  5. VITAMIN B3 [Concomitant]
     Dosage: UNK
     Dates: start: 20110501, end: 20110601
  6. ZOPICLONE [Concomitant]
     Dosage: UNK
  7. MULTI-VITAMIN [Concomitant]
     Dosage: UNK
     Dates: start: 20110501, end: 20110601
  8. ANAESTHETICS [Concomitant]

REACTIONS (1)
  - DRUG RASH WITH EOSINOPHILIA AND SYSTEMIC SYMPTOMS [None]
